FAERS Safety Report 5394352-6 (Version None)
Quarter: 2007Q3

REPORT INFORMATION
  Report Type: 
  Country: None (occurrence: None)
  Receive Date: 20070723
  Receipt Date: 20070525
  Transmission Date: 20080115
  Serious: No
  Sender: FDA-Public Use
  Company Number: A0653036A

PATIENT
  Sex: Female

DRUGS (5)
  1. AVANDIA [Suspect]
     Route: 048
     Dates: end: 20070525
  2. METFORMIN HCL [Concomitant]
  3. GLYBURIDE [Concomitant]
  4. BENICAR [Concomitant]
  5. NORVASC [Concomitant]

REACTIONS (1)
  - PALPITATIONS [None]
